FAERS Safety Report 6620415-0 (Version None)
Quarter: 2010Q1

REPORT INFORMATION
  Report Type: 
  Country: None (occurrence: None)
  Receive Date: 20100309
  Receipt Date: 20100301
  Transmission Date: 20100710
  Serious: Yes (Other)
  Sender: FDA-Public Use
  Company Number: US-PFIZER INC-2010014026

PATIENT
  Sex: Female
  Weight: 56.236 kg

DRUGS (3)
  1. DEPO-PROVERA [Suspect]
     Indication: CONTRACEPTION
     Route: 030
     Dates: start: 20091218
  2. DEPO-PROVERA [Suspect]
     Indication: MENSTRUAL DISCOMFORT
  3. AMOXICILLIN [Concomitant]

REACTIONS (16)
  - ANAEMIA [None]
  - ANXIETY [None]
  - BACK PAIN [None]
  - BLOOD FOLATE DECREASED [None]
  - BLOOD IRON DECREASED [None]
  - BONE PAIN [None]
  - CONDITION AGGRAVATED [None]
  - DRUG INEFFECTIVE [None]
  - DYSMENORRHOEA [None]
  - KIDNEY ENLARGEMENT [None]
  - LIBIDO DECREASED [None]
  - MENORRHAGIA [None]
  - MOOD SWINGS [None]
  - THYROID DISORDER [None]
  - UNINTENDED PREGNANCY [None]
  - VITAMIN B12 DECREASED [None]
